FAERS Safety Report 4429273-6 (Version None)
Quarter: 2004Q3

REPORT INFORMATION
  Report Type: 
  Country: None (occurrence: None)
  Receive Date: 20040817
  Receipt Date: 20040817
  Transmission Date: 20050211
  Serious: Yes (Death)
  Sender: FDA-Public Use
  Company Number: None

PATIENT
  Age: 71 Year
  Sex: Male
  Weight: 68.4932 kg

DRUGS (8)
  1. TAXOTERE [Suspect]
     Indication: NON-SMALL CELL LUNG CANCER
     Dosage: 35 MG/M2 D1 AND D8 Q IV
     Route: 042
     Dates: start: 20040610, end: 20040708
  2. CARBOPLATIN [Suspect]
     Indication: NON-SMALL CELL LUNG CANCER
     Dosage: AUC 6 D1 Q 21 DA IV
     Route: 042
     Dates: start: 20040610, end: 20040701
  3. DECADRON [Concomitant]
  4. KYTRIL [Concomitant]
  5. COMPAZINE [Concomitant]
  6. LANOXIN [Concomitant]
  7. PROSCAR [Concomitant]
  8. LIPITOR [Concomitant]

REACTIONS (3)
  - CARDIO-RESPIRATORY ARREST [None]
  - EMBOLISM [None]
  - GENERAL PHYSICAL HEALTH DETERIORATION [None]
